FAERS Safety Report 7052166-5 (Version None)
Quarter: 2010Q4

REPORT INFORMATION
  Report Type: 
  Country: None (occurrence: None)
  Receive Date: 20101019
  Receipt Date: 20101008
  Transmission Date: 20110411
  Serious: Yes (Hospitalization, Other)
  Sender: FDA-Public Use
  Company Number: US-RB-014260-10

PATIENT
  Age: 17 Year
  Sex: Male

DRUGS (1)
  1. DELSYM [Suspect]
     Dosage: PATIENT HAS BEEN TAKING 3 BOTTLES AT ONE TIME
     Route: 048

REACTIONS (7)
  - DRUG ABUSE [None]
  - FEELING ABNORMAL [None]
  - HALLUCINATION [None]
  - MUSCLE TWITCHING [None]
  - PARANOIA [None]
  - PSYCHOTIC DISORDER [None]
  - VOMITING [None]
